FAERS Safety Report 5884473-3 (Version None)
Quarter: 2008Q3

REPORT INFORMATION
  Report Type: 
  Country: None (occurrence: None)
  Receive Date: 20080911
  Receipt Date: 20080902
  Transmission Date: 20090109
  Serious: Yes (Hospitalization)
  Sender: FDA-Public Use
  Company Number: OMPQ-NO-0803S-0173

PATIENT
  Age: 49 Year
  Sex: Female

DRUGS (2)
  1. OMNIPAQUE 140 [Suspect]
     Indication: PYELONEPHRITIS CHRONIC
     Dosage: NR, SINGLE DOSE
     Dates: start: 20070423, end: 20070423
  2. BISACODYL (TOILAX) [Concomitant]

REACTIONS (30)
  - ACTIVITIES OF DAILY LIVING IMPAIRED [None]
  - AMNESIA [None]
  - APHASIA [None]
  - ARTHRALGIA [None]
  - BLISTER [None]
  - DEPRESSION [None]
  - DRUG HYPERSENSITIVITY [None]
  - DRUG INTERACTION [None]
  - DRUG TOXICITY [None]
  - DYSAESTHESIA [None]
  - DYSGEUSIA [None]
  - DYSPHAGIA [None]
  - DYSPNOEA [None]
  - EYE INFLAMMATION [None]
  - FATIGUE [None]
  - HYPERACUSIS [None]
  - LIP SWELLING [None]
  - MUSCULOSKELETAL DISORDER [None]
  - NERVOUS SYSTEM DISORDER [None]
  - PALPITATIONS [None]
  - PERFUME SENSITIVITY [None]
  - PHOTOPHOBIA [None]
  - RASH PAPULAR [None]
  - RENAL IMPAIRMENT [None]
  - SENSORY LOSS [None]
  - SKIN EROSION [None]
  - SLEEP DISORDER [None]
  - SOLVENT SENSITIVITY [None]
  - TREMOR [None]
  - VITAMIN D DEFICIENCY [None]
